FAERS Safety Report 24708923 (Version 1)
Quarter: 2024Q4

REPORT INFORMATION
  Report Type: Spontaneous
  Country: KR (occurrence: KR)
  Receive Date: 20241208
  Receipt Date: 20241208
  Transmission Date: 20250115
  Serious: Yes (Hospitalization, Other)
  Sender: Kenvue
  Company Number: KR-KENVUE-20241107889

PATIENT

DRUGS (1)
  1. ACETAMINOPHEN [Suspect]
     Active Substance: ACETAMINOPHEN
     Indication: Accidental exposure to product
     Dosage: MORE THAN  30 MG/KG OR MORE 1,500 MG IN ABSOLUTE AMOUNT AS A SINGLE DOSE
     Route: 065

REACTIONS (6)
  - Suicide attempt [Unknown]
  - Intentional self-injury [Unknown]
  - Hepatotoxicity [Recovered/Resolved]
  - Nephropathy toxic [Recovered/Resolved]
  - Intentional overdose [Unknown]
  - Accidental overdose [Unknown]
